FAERS Safety Report 5844394-9 (Version None)
Quarter: 2008Q3

REPORT INFORMATION
  Report Type: 
  Country: None (occurrence: None)
  Receive Date: 20080813
  Receipt Date: 20080804
  Transmission Date: 20090109
  Serious: Yes (Death, Hospitalization, Other)
  Sender: FDA-Public Use
  Company Number: DE-MERCK-0808DEU00013

PATIENT
  Age: 82 Year
  Sex: Female

DRUGS (3)
  1. FOSAMAX [Suspect]
     Route: 048
     Dates: end: 20051210
  2. CLINDAMYCIN [Suspect]
     Indication: PROPHYLAXIS
     Route: 042
     Dates: start: 20051126, end: 20051126
  3. CEFPODOXIME PROXETIL [Suspect]
     Indication: PNEUMONIA
     Route: 065
     Dates: start: 20051129, end: 20051206

REACTIONS (22)
  - ANAEMIA POSTOPERATIVE [None]
  - BRONCHITIS [None]
  - BRONCHITIS BACTERIAL [None]
  - CEREBRAL INFARCTION [None]
  - CEREBRAL MICROANGIOPATHY [None]
  - CONFUSIONAL STATE [None]
  - DEATH [None]
  - DYSPHAGIA [None]
  - ENTEROVESICAL FISTULA [None]
  - FEMUR FRACTURE [None]
  - GOITRE [None]
  - ODYNOPHAGIA [None]
  - OESOPHAGEAL DISORDER [None]
  - OROPHARYNGEAL PAIN [None]
  - PAIN [None]
  - PNEUMONIA [None]
  - POST PROCEDURAL HAEMORRHAGE [None]
  - PSEUDOMEMBRANOUS COLITIS [None]
  - PYREXIA [None]
  - RENAL FAILURE [None]
  - THYROID DISORDER [None]
  - TRACHEAL STENOSIS [None]
